FAERS Safety Report 14682727 (Version 2)
Quarter: 2018Q3

REPORT INFORMATION
  Report Type: Spontaneous
  Country: BR (occurrence: BR)
  Receive Date: 20180327
  Receipt Date: 20180707
  Transmission Date: 20181010
  Serious: Yes (Other)
  Sender: FDA-Public Use
  Company Number: BR-009507513-1803BRA009728

PATIENT
  Sex: Female

DRUGS (2)
  1. MK?0000 [Suspect]
     Active Substance: INVESTIGATIONAL PRODUCT
  2. LOSARTAN. [Suspect]
     Active Substance: LOSARTAN
     Indication: BLOOD PRESSURE MEASUREMENT
     Dosage: 1 DF, BID
     Route: 048

REACTIONS (1)
  - Diabetes mellitus [Unknown]
